FAERS Safety Report 6673705-X (Version None)
Quarter: 2010Q2

REPORT INFORMATION
  Report Type: 
  Country: None (occurrence: None)
  Receive Date: 20100408
  Receipt Date: 20100401
  Transmission Date: 20101027
  Serious: Yes (Death)
  Sender: FDA-Public Use
  Company Number: IE-AMGEN-QUU403273

PATIENT
  Sex: Female

DRUGS (3)
  1. NEULASTA [Suspect]
     Indication: BREAST CANCER
     Route: 065
  2. ATENOLOL/CHLORTALIDONE [Concomitant]
  3. LOPERAMIDE [Concomitant]

REACTIONS (1)
  - DEATH [None]
